FAERS Safety Report 9913084 (Version 1)
Quarter: 2014Q1

REPORT INFORMATION
  Report Type: Spontaneous
  Country: US (occurrence: None)
  Receive Date: 20140218
  Receipt Date: 20140218
  Transmission Date: 20141002
  Serious: No
  Sender: FDA-Public Use
  Company Number: None

PATIENT
  Age: 41 Year
  Sex: Female
  Weight: 50.35 kg

DRUGS (2)
  1. VENLAFAXINE HCL ER [Suspect]
     Indication: DEPRESSION
     Route: 048
     Dates: start: 20140201, end: 20140208
  2. VENLAFAXINE HCL ER [Suspect]
     Indication: ANXIETY
     Route: 048
     Dates: start: 20140201, end: 20140208

REACTIONS (3)
  - Myalgia [None]
  - Insomnia [None]
  - Muscle disorder [None]
